FAERS Safety Report 18271743 (Version 1)
Quarter: 2020Q3

REPORT INFORMATION
  Report Type: Spontaneous
  Country: ES (occurrence: ES)
  Receive Date: 20200916
  Receipt Date: 20200916
  Transmission Date: 20201103
  Serious: Yes (Other)
  Sender: FDA-Public Use
  Company Number: ES-CADILA HEALTHCARE LIMITED-ES-ZYDUS-027982

PATIENT

DRUGS (2)
  1. FLUIDASA (MEPYRAMINE THEOPHYLLINE ACETATE) [Suspect]
     Active Substance: MEPIFYLLINE
     Indication: UPPER RESPIRATORY TRACT INFECTION
     Dosage: 5 MILLIGRAM,(INTERVAL :8 HOURS)
     Route: 048
     Dates: start: 20180305, end: 20180306
  2. LEVOFLOXACIN. [Suspect]
     Active Substance: LEVOFLOXACIN
     Indication: UPPER RESPIRATORY TRACT INFECTION
     Route: 048
     Dates: start: 20180305, end: 20180306

REACTIONS (2)
  - Pruritus [Recovered/Resolved]
  - Respiratory distress [Recovered/Resolved]

NARRATIVE: CASE EVENT DATE: 20180305
